FAERS Safety Report 23958648 (Version 1)
Quarter: 2024Q2

REPORT INFORMATION
  Report Type: Report from Study
  Country: US (occurrence: US)
  Receive Date: 20240610
  Receipt Date: 20240610
  Transmission Date: 20240716
  Serious: Yes (Other)
  Sender: FDA-Public Use
  Company Number: US-ABBVIE-5753818

PATIENT
  Age: 85 Year
  Sex: Female

DRUGS (1)
  1. HUMIRA [Suspect]
     Active Substance: ADALIMUMAB
     Indication: Rheumatoid arthritis
     Route: 058
     Dates: start: 20200701

REACTIONS (4)
  - Myocardial ischaemia [Unknown]
  - Fatigue [Unknown]
  - Rash pruritic [Recovering/Resolving]
  - Varicose vein [Recovering/Resolving]

NARRATIVE: CASE EVENT DATE: 20240301
